FAERS Safety Report 11652884 (Version 4)
Quarter: 2016Q3

REPORT INFORMATION
  Report Type: Report from Study
  Country: JP (occurrence: JP)
  Receive Date: 20151022
  Receipt Date: 20160802
  Transmission Date: 20161109
  Serious: Yes (Hospitalization)
  Sender: FDA-Public Use
  Company Number: PHHO2015JP017452

PATIENT
  Age: 56 Year
  Sex: Female
  Weight: 48.7 kg

DRUGS (3)
  1. PABRON GOLD A [Suspect]
     Active Substance: ACETAMINOPHEN\CAFFEINE\CARBINOXAMINE MALEATE\DIHYDROCODEINE PHOSPHATE\GUAIFENESIN\LYSOZYME HYDROCHLORIDE\METHYLEPHEDRINE HYDROCHLORIDE, (+/-)-\RIBOFLAVIN\SULBUTIAMINE
     Indication: NASOPHARYNGITIS
     Dosage: 6 DF, Q8H
     Route: 048
     Dates: start: 20151001, end: 20151001
  2. PABRON GOLD A [Suspect]
     Active Substance: ACETAMINOPHEN\CAFFEINE\CARBINOXAMINE MALEATE\DIHYDROCODEINE PHOSPHATE\GUAIFENESIN\LYSOZYME HYDROCHLORIDE\METHYLEPHEDRINE HYDROCHLORIDE, (+/-)-\RIBOFLAVIN\SULBUTIAMINE
     Dosage: 2 DF, Q8H
     Route: 048
     Dates: start: 20151002, end: 20151002
  3. ARZERRA [Suspect]
     Active Substance: OFATUMUMAB
     Indication: B-CELL LYMPHOMA
     Dosage: 1000 MG, CYCLIC
     Route: 042
     Dates: start: 20150722, end: 20150810

REACTIONS (2)
  - Alanine aminotransferase increased [Recovered/Resolved]
  - Aspartate aminotransferase increased [Recovered/Resolved]

NARRATIVE: CASE EVENT DATE: 20151005
